FAERS Safety Report 6026100-0 (Version None)
Quarter: 2009Q1

REPORT INFORMATION
  Report Type: 
  Country: None (occurrence: None)
  Receive Date: 20090102
  Receipt Date: 20081222
  Transmission Date: 20090719
  Serious: Yes (Other)
  Sender: FDA-Public Use
  Company Number: US-TEVA-183173USA

PATIENT
  Age: 15 Year
  Sex: Male

DRUGS (8)
  1. FLUDARABINE PHOSPHATE 50 MG/VIAL [Suspect]
     Indication: ACUTE LYMPHOCYTIC LEUKAEMIA RECURRENT
  2. METHOTREXATE [Suspect]
     Indication: ACUTE LYMPHOCYTIC LEUKAEMIA RECURRENT
  3. CYTARABINE [Suspect]
     Indication: ACUTE LYMPHOCYTIC LEUKAEMIA RECURRENT
  4. HYDROCORTISONE [Suspect]
     Indication: ACUTE LYMPHOCYTIC LEUKAEMIA RECURRENT
  5. TOPOTECAN [Suspect]
     Indication: ACUTE LYMPHOCYTIC LEUKAEMIA RECURRENT
  6. THIOPTEPA [Suspect]
     Indication: ACUTE LYMPHOCYTIC LEUKAEMIA RECURRENT
  7. MELPHALAN [Suspect]
     Indication: ACUTE LYMPHOCYTIC LEUKAEMIA RECURRENT
  8. ORTHOCLONE OKT3 [Suspect]
     Indication: ACUTE LYMPHOCYTIC LEUKAEMIA RECURRENT

REACTIONS (2)
  - LEUKOENCEPHALOPATHY [None]
  - MYELOPATHY [None]
